FAERS Safety Report 4394233-0 (Version None)
Quarter: 2004Q3

REPORT INFORMATION
  Report Type: 
  Country: None (occurrence: None)
  Receive Date: 20040712
  Receipt Date: 20040701
  Transmission Date: 20050211
  Serious: Yes (Hospitalization)
  Sender: FDA-Public Use
  Company Number: PHBS2004IT08789

PATIENT
  Age: 78 Year
  Sex: Female

DRUGS (3)
  1. CYCLOSPORINE [Suspect]
     Indication: URAEMIC PRURITUS
     Dosage: 200 MG/D
     Route: 065
     Dates: start: 20001101, end: 20010301
  2. CYCLOSPORINE [Suspect]
     Route: 065
     Dates: start: 20020101, end: 20020401
  3. CYCLOSPORINE [Suspect]
     Dates: start: 20020601

REACTIONS (3)
  - CHOLELITHIASIS [None]
  - JAUNDICE CHOLESTATIC [None]
  - SURGERY [None]
